FAERS Safety Report 8582454-2 (Version None)
Quarter: 2012Q3

REPORT INFORMATION
  Report Type: 
  Country: None (occurrence: None)
  Receive Date: 20120809
  Receipt Date: 20120731
  Transmission Date: 20120928
  Serious: Yes (Other)
  Sender: FDA-Public Use
  Company Number: FR-JNJFOC-20120800079

PATIENT
  Sex: Male

DRUGS (2)
  1. DOXORUBICIN HCL [Suspect]
     Indication: MYCOSIS FUNGOIDES
     Route: 042
  2. GEMZAR [Suspect]
     Indication: MYCOSIS FUNGOIDES
     Route: 065

REACTIONS (2)
  - TOXIC SKIN ERUPTION [None]
  - PALMAR-PLANTAR ERYTHRODYSAESTHESIA SYNDROME [None]
